FAERS Safety Report 8244827-7 (Version None)
Quarter: 2012Q1

REPORT INFORMATION
  Report Type: 
  Country: None (occurrence: None)
  Receive Date: 20120329
  Receipt Date: 20110526
  Transmission Date: 20120608
  Serious: No
  Sender: FDA-Public Use
  Company Number: US-MYLANLABS-2011S1011039

PATIENT
  Age: 55 Year
  Sex: Male
  Weight: 84.37 kg

DRUGS (3)
  1. HYDROCODONE BITARTRATE AND ACETAMINOPHEN [Concomitant]
     Indication: BREAKTHROUGH PAIN
     Dosage: 7.5MG/500MG
     Route: 048
     Dates: start: 20101201
  2. FENTANYL-100 [Suspect]
     Indication: BACK PAIN
     Dosage: Q48H
     Route: 062
     Dates: start: 20110510
  3. FENTANYL-100 [Suspect]
     Indication: MUSCULOSKELETAL PAIN
     Dosage: Q48H
     Route: 062
     Dates: start: 20110510

REACTIONS (4)
  - WITHDRAWAL SYNDROME [None]
  - APPLICATION SITE PRURITUS [None]
  - FATIGUE [None]
  - APPLICATION SITE ERYTHEMA [None]
